FAERS Safety Report 24957619 (Version 1)
Quarter: 2025Q1

REPORT INFORMATION
  Report Type: Spontaneous
  Country: CA (occurrence: CA)
  Receive Date: 20250212
  Receipt Date: 20250212
  Transmission Date: 20250409
  Serious: Yes (Other)
  Sender: INTERCEPT PHARMACEUTICALS
  Company Number: CA-ADVANZ PHARMA-202412010609

PATIENT
  Age: 78 Year
  Sex: Female
  Weight: 67.5 kg

DRUGS (14)
  1. OCALIVA [Suspect]
     Active Substance: OBETICHOLIC ACID
     Indication: Primary biliary cholangitis
     Route: 048
     Dates: start: 20240222
  2. OCALIVA [Suspect]
     Active Substance: OBETICHOLIC ACID
     Route: 048
  3. URSODIOL [Concomitant]
     Active Substance: URSODIOL
     Dates: start: 20230101
  4. ASPIRIN [Concomitant]
     Active Substance: ASPIRIN
  5. ASPIRIN [Concomitant]
     Active Substance: ASPIRIN
  6. ASPIRIN [Concomitant]
     Active Substance: ASPIRIN
  7. PREVACID [Concomitant]
     Active Substance: LANSOPRAZOLE
  8. PREVACID [Concomitant]
     Active Substance: LANSOPRAZOLE
  9. PREVACID [Concomitant]
     Active Substance: LANSOPRAZOLE
  10. PRAVASTATIN SODIUM [Concomitant]
     Active Substance: PRAVASTATIN SODIUM
  11. BISOPROLOL FUMARATE [Concomitant]
     Active Substance: BISOPROLOL FUMARATE
  12. RABEPRAZOLE SODIUM [Concomitant]
     Active Substance: RABEPRAZOLE SODIUM
  13. IRBESARTAN [Concomitant]
     Active Substance: IRBESARTAN
  14. NIFEDIPINE [Concomitant]
     Active Substance: NIFEDIPINE

REACTIONS (5)
  - Gallbladder enlargement [Unknown]
  - Hepatic steatosis [Unknown]
  - Liver disorder [Unknown]
  - Blood alkaline phosphatase increased [Not Recovered/Not Resolved]
  - Drug ineffective [Unknown]

NARRATIVE: CASE EVENT DATE: 20241001
